FAERS Safety Report 5225393-7 (Version None)
Quarter: 2007Q1

REPORT INFORMATION
  Report Type: 
  Country: None (occurrence: None)
  Receive Date: 20070131
  Receipt Date: 20070129
  Transmission Date: 20070707
  Serious: No
  Sender: FDA-Public Use
  Company Number: IT-SHR-IT-2007-001433

PATIENT
  Age: 37 Year
  Sex: Male

DRUGS (1)
  1. MAGNEVIST [Suspect]
     Dosage: 15 ML, 1 DOSE
     Route: 042
     Dates: start: 20070110, end: 20070110

REACTIONS (5)
  - COUGH [None]
  - ERYTHEMA [None]
  - PHARYNGITIS [None]
  - RHINITIS [None]
  - SNEEZING [None]
